FAERS Safety Report 8326457-1 (Version None)
Quarter: 2012Q2

REPORT INFORMATION
  Report Type: 
  Country: None (occurrence: None)
  Receive Date: 20120501
  Receipt Date: 20120316
  Transmission Date: 20120825
  Serious: Yes (Hospitalization)
  Sender: FDA-Public Use
  Company Number: AR-ROCHE-787296

PATIENT
  Age: 41 Year
  Sex: Female
  Weight: 61 kg

DRUGS (3)
  1. ACTEMRA [Suspect]
     Dosage: DOSE: BLINDED
     Route: 058
  2. ACTEMRA [Suspect]
     Indication: RHEUMATOID ARTHRITIS
     Route: 058
     Dates: start: 20111129
  3. PLACEBO [Suspect]
     Indication: RHEUMATOID ARTHRITIS
     Dosage: DOSE: BLINDED
     Route: 042

REACTIONS (5)
  - ANASTOMOTIC ULCER HAEMORRHAGE [None]
  - URINARY TRACT INFECTION [None]
  - PHARYNGITIS [None]
  - PHARYNGOTONSILLITIS [None]
  - BRONCHITIS [None]
